FAERS Safety Report 16094684 (Version 1)
Quarter: 2019Q1

REPORT INFORMATION
  Report Type: Report from Study
  Country: None (occurrence: BR)
  Receive Date: 20190320
  Receipt Date: 20190320
  Transmission Date: 20190418
  Serious: Yes (Hospitalization)
  Sender: FDA-Public Use
  Company Number: BR-ABBVIE-19K-020-2707528-00

PATIENT
  Sex: Female

DRUGS (1)
  1. HUMIRA [Suspect]
     Active Substance: ADALIMUMAB
     Indication: PRODUCT USED FOR UNKNOWN INDICATION
     Route: 058
     Dates: start: 20180104

REACTIONS (9)
  - Full blood count abnormal [Unknown]
  - Influenza [Recovered/Resolved]
  - Gait disturbance [Recovering/Resolving]
  - Nausea [Recovered/Resolved]
  - Arthralgia [Recovering/Resolving]
  - Pain in extremity [Recovering/Resolving]
  - Drug ineffective [Unknown]
  - Headache [Not Recovered/Not Resolved]
  - C-reactive protein increased [Unknown]
